FAERS Safety Report 11865932 (Version 2)
Quarter: 2016Q1

REPORT INFORMATION
  Report Type: Spontaneous
  Country: CN (occurrence: CN)
  Receive Date: 20151223
  Receipt Date: 20160209
  Transmission Date: 20160526
  Serious: Yes (Hospitalization, Other)
  Sender: FDA-Public Use
  Company Number: CN-MYLANLABS-2015M1046850

PATIENT

DRUGS (14)
  1. MORPHINE [Suspect]
     Active Substance: MORPHINE
     Dosage: 20 MG/4 HOURS
     Route: 048
  2. OXYCODONE W/PARACETAMOL [Suspect]
     Active Substance: ACETAMINOPHEN\OXYCODONE HYDROCHLORIDE
     Indication: BREAKTHROUGH PAIN
     Route: 065
  3. CARBAMAZEPINE. [Suspect]
     Active Substance: CARBAMAZEPINE
     Indication: BREAKTHROUGH PAIN
     Route: 065
  4. TRAMADOL. [Suspect]
     Active Substance: TRAMADOL
     Indication: BREAKTHROUGH PAIN
     Route: 065
  5. PREGABALIN. [Concomitant]
     Active Substance: PREGABALIN
     Indication: BREAKTHROUGH PAIN
     Route: 065
  6. FAMOTIDINE. [Suspect]
     Active Substance: FAMOTIDINE
     Indication: PRODUCT USED FOR UNKNOWN INDICATION
     Route: 065
  7. MORPHINE [Suspect]
     Active Substance: MORPHINE
     Dosage: 10MG EVERY 1-2 HOURS
     Route: 033
  8. MOSAPRIDE CITRATE [Suspect]
     Active Substance: MOSAPRIDE CITRATE
     Indication: PRODUCT USED FOR UNKNOWN INDICATION
     Route: 065
  9. MORPHINE [Suspect]
     Active Substance: MORPHINE
     Indication: BREAKTHROUGH PAIN
     Route: 033
  10. MORPHINE [Suspect]
     Active Substance: MORPHINE
     Dosage: 30-40MG
     Route: 048
  11. FENTANYL. [Suspect]
     Active Substance: FENTANYL
     Indication: BREAKTHROUGH PAIN
     Dosage: 100 MICROG/HOUR
     Route: 062
  12. FENTANYL. [Suspect]
     Active Substance: FENTANYL
     Dosage: 150 MICROG/HOUR
     Route: 062
  13. GABAPENTIN. [Concomitant]
     Active Substance: GABAPENTIN
     Indication: BREAKTHROUGH PAIN
     Route: 065
  14. DULOXETINE. [Concomitant]
     Active Substance: DULOXETINE
     Indication: BREAKTHROUGH PAIN
     Dosage: 120MG ONCE EACH NIGHT
     Route: 065

REACTIONS (3)
  - Hyperaesthesia [Recovered/Resolved]
  - Hepatic function abnormal [Recovering/Resolving]
  - Drug withdrawal syndrome [Recovered/Resolved]

NARRATIVE: CASE EVENT DATE: 20150110
